FAERS Safety Report 5891490-6 (Version None)
Quarter: 2008Q3

REPORT INFORMATION
  Report Type: 
  Country: None (occurrence: None)
  Receive Date: 20080909
  Receipt Date: 20080828
  Transmission Date: 20090109
  Serious: Yes (Hospitalization)
  Sender: FDA-Public Use
  Company Number: WSDF_00746

PATIENT
  Age: 71 Year
  Sex: Male
  Weight: 101 kg

DRUGS (11)
  1. WINRHO SDF [Suspect]
     Indication: IDIOPATHIC THROMBOCYTOPENIC PURPURA
     Dosage: 49.5 ?G/KG ONCE IV
     Route: 042
     Dates: start: 20080805, end: 20080805
  2. WINRHO SDF [Suspect]
     Indication: IDIOPATHIC THROMBOCYTOPENIC PURPURA
     Dates: start: 20080805, end: 20080805
  3. LIPITOR [Concomitant]
  4. ALLOPURINOL [Concomitant]
  5. AVAPRO [Concomitant]
  6. FUROSEMIDE [Concomitant]
  7. INSULIN [Concomitant]
  8. LORAZEPAM [Concomitant]
  9. METFORMIN HCL [Concomitant]
  10. METOPROLOL TARTRATE [Concomitant]
  11. PREDNISONE [Concomitant]

REACTIONS (9)
  - BACK PAIN [None]
  - CHILLS [None]
  - HAEMATURIA [None]
  - HAEMOGLOBIN DECREASED [None]
  - HAEMOLYTIC TRANSFUSION REACTION [None]
  - HYPOTENSION [None]
  - NAUSEA [None]
  - RENAL FAILURE [None]
  - VOMITING [None]
